FAERS Safety Report 6865067-X (Version None)
Quarter: 2010Q3

REPORT INFORMATION
  Report Type: 
  Country: None (occurrence: None)
  Receive Date: 20100721
  Receipt Date: 20080415
  Transmission Date: 20110219
  Serious: No
  Sender: FDA-Public Use
  Company Number: US-PFIZER INC-2008033633

PATIENT
  Sex: Female
  Weight: 88.2 kg

DRUGS (5)
  1. CHANTIX [Suspect]
     Indication: SMOKING CESSATION THERAPY
     Route: 048
     Dates: start: 20080407
  2. REMERON [Concomitant]
  3. CARDIZEM [Concomitant]
  4. DIOVANE [Concomitant]
  5. CELEXA [Concomitant]

REACTIONS (3)
  - ABNORMAL DREAMS [None]
  - SLEEP TALKING [None]
  - VOMITING [None]
